FAERS Safety Report 19174693 (Version 1)
Quarter: 2021Q2

REPORT INFORMATION
  Report Type: Spontaneous
  Country: JP (occurrence: JP)
  Receive Date: 20210423
  Receipt Date: 20210423
  Transmission Date: 20210717
  Serious: Yes (Other)
  Sender: FDA-Public Use
  Company Number: JP-ASTRAZENECA-2020SF34449

PATIENT
  Age: 83 Year
  Sex: Male

DRUGS (2)
  1. TAGRISSO [Suspect]
     Active Substance: OSIMERTINIB
     Indication: NON-SMALL CELL LUNG CANCER
     Route: 048
     Dates: start: 20190501, end: 201911
  2. TAGRISSO [Suspect]
     Active Substance: OSIMERTINIB
     Indication: NON-SMALL CELL LUNG CANCER
     Route: 048
     Dates: start: 2019

REACTIONS (6)
  - Electrocardiogram QT prolonged [Recovered/Resolved]
  - Hepatic function abnormal [Unknown]
  - Metastases to meninges [Unknown]
  - Altered state of consciousness [Unknown]
  - Delirium [Unknown]
  - Dry skin [Unknown]

NARRATIVE: CASE EVENT DATE: 20190701
